FAERS Safety Report 6841885-9 (Version None)
Quarter: 2010Q3

REPORT INFORMATION
  Report Type: 
  Country: None (occurrence: None)
  Receive Date: 20100714
  Receipt Date: 20070717
  Transmission Date: 20110219
  Serious: No
  Sender: FDA-Public Use
  Company Number: US-PFIZER INC-2007059483

PATIENT
  Sex: Male
  Weight: 65.9 kg

DRUGS (3)
  1. CHANTIX [Suspect]
     Indication: SMOKING CESSATION THERAPY
     Dates: start: 20070701, end: 20070717
  2. CARDIOVASCULAR SYSTEM DRUGS [Concomitant]
  3. CHOLESTEROL [Concomitant]

REACTIONS (3)
  - DECREASED APPETITE [None]
  - MALAISE [None]
  - NAUSEA [None]
